FAERS Safety Report 4600421-8 (Version None)
Quarter: 2005Q1

REPORT INFORMATION
  Report Type: 
  Country: None (occurrence: None)
  Receive Date: 20050304
  Receipt Date: 20050218
  Transmission Date: 20050727
  Serious: Yes (Hospitalization)
  Sender: FDA-Public Use
  Company Number: 234564K03USA

PATIENT
  Age: 53 Year
  Sex: Male

DRUGS (3)
  1. REBIF [Suspect]
     Indication: MULTIPLE SCLEROSIS
     Dates: start: 20030603, end: 20031201
  2. AZATHIOPRINE [Suspect]
  3. ZONISAMIDE [Concomitant]

REACTIONS (15)
  - BALANCE DISORDER [None]
  - BLOOD POTASSIUM DECREASED [None]
  - CATARACT [None]
  - CATHETER RELATED INFECTION [None]
  - CATHETER SEPSIS [None]
  - CONFUSIONAL STATE [None]
  - DEHYDRATION [None]
  - DIFFICULTY IN WALKING [None]
  - HYPOAESTHESIA [None]
  - METHICILLIN-RESISTANT STAPHYLOCOCCAL AUREUS TEST POSITIVE [None]
  - NEUTROPENIA [None]
  - PANCYTOPENIA [None]
  - RETINAL DETACHMENT [None]
  - TOOTH LOSS [None]
  - VASCULITIS [None]
